FAERS Safety Report 9884948 (Version 1)
Quarter: 2014Q1

REPORT INFORMATION
  Report Type: Spontaneous
  Country: US (occurrence: US)
  Receive Date: 20140210
  Receipt Date: 20140210
  Transmission Date: 20141002
  Serious: No
  Sender: FDA-Public Use
  Company Number: US-JNJFOC-20140117596

PATIENT
  Age: 62 Year
  Sex: Male
  Weight: 56.7 kg

DRUGS (4)
  1. SANDOZ FENTANYL TRANSDERMAL SYSTEM [Suspect]
     Indication: BACK PAIN
     Route: 062
  2. HYDROCODONE [Concomitant]
     Indication: BACK PAIN
     Dosage: 10-325MG AS NEEDED.
     Route: 048
     Dates: start: 2006
  3. LANSOPRAZOLE [Concomitant]
     Indication: GASTRIC DISORDER
     Route: 048
     Dates: start: 2009
  4. POTASSIUM [Concomitant]
     Indication: BLOOD POTASSIUM DECREASED
     Route: 048
     Dates: start: 2009

REACTIONS (3)
  - Wrong technique in drug usage process [Not Recovered/Not Resolved]
  - Wrong technique in drug usage process [Not Recovered/Not Resolved]
  - Lethargy [Not Recovered/Not Resolved]
